FAERS Safety Report 25497328 (Version 3)
Quarter: 2025Q3

REPORT INFORMATION
  Report Type: Report from Study
  Country: EU (occurrence: EU)
  Receive Date: 20250701
  Receipt Date: 20250714
  Transmission Date: 20251020
  Serious: Yes (Hospitalization)
  Sender: SANOFI AVENTIS
  Company Number: EU-ALCEDIS-650_OBS17251

PATIENT
  Age: 50 Year
  Sex: Male
  Weight: 63 kg

DRUGS (9)
  1. DUPILUMAB [Suspect]
     Active Substance: DUPILUMAB
     Indication: Dermatitis atopic
     Dosage: 300 MG, QOW, ADULTS, AS WELL AS ADOLESCENTS AND CHILDREN (6 YEARS AND OLDER) }60 KG
     Route: 058
     Dates: start: 20250228, end: 20250703
  2. CLOBETASOL PROPIONATE [Concomitant]
     Active Substance: CLOBETASOL PROPIONATE
     Route: 050
     Dates: start: 20250625
  3. Potassium nitrate;Silver nitrate [Concomitant]
     Route: 050
     Dates: start: 20250625
  4. LORATADINE [Concomitant]
     Active Substance: LORATADINE
     Route: 050
     Dates: start: 20250625
  5. LORATADINE [Concomitant]
     Active Substance: LORATADINE
     Route: 048
     Dates: start: 20250624
  6. Dermoxin [Concomitant]
     Route: 050
     Dates: start: 20250625
  7. Octenidine;Prednicarbate [Concomitant]
     Route: 050
     Dates: start: 20250627
  8. MOMETASONE FUROATE [Concomitant]
     Active Substance: MOMETASONE FUROATE
     Route: 050
     Dates: start: 20250624
  9. POLIDOCANOL [Concomitant]
     Active Substance: POLIDOCANOL
     Route: 050
     Dates: start: 20250630

REACTIONS (1)
  - Psoriasis [Not Recovered/Not Resolved]

NARRATIVE: CASE EVENT DATE: 20250624
